FAERS Safety Report 4501435-9 (Version None)
Quarter: 2004Q4

REPORT INFORMATION
  Report Type: 
  Country: None (occurrence: None)
  Receive Date: 20040928
  Receipt Date: 20040818
  Transmission Date: 20050328
  Serious: No
  Sender: FDA-Public Use
  Company Number: 04P-163-0270936-00

PATIENT
  Age: 47 Year
  Sex: Female
  Weight: 65.318 kg

DRUGS (7)
  1. HUMIRA [Suspect]
     Indication: RHEUMATOID ARTHRITIS
     Dosage: 40 MG, 1 IN 2 WK
     Dates: start: 20040601
  2. HYDROXYCHLOROQUINE PHOSPHATE [Concomitant]
  3. NAPROXEN [Concomitant]
  4. SOTALOL HYDROCHLORIDE [Concomitant]
  5. OXAZEPAM [Concomitant]
  6. DIGOXIN [Concomitant]
  7. PHENOBARBITAL TAB [Concomitant]

REACTIONS (2)
  - AXILLARY MASS [None]
  - FATIGUE [None]
